FAERS Safety Report 16640767 (Version 4)
Quarter: 2021Q3

REPORT INFORMATION
  Report Type: Spontaneous
  Country: US (occurrence: US)
  Receive Date: 20190729
  Receipt Date: 20210719
  Transmission Date: 20211014
  Serious: Yes (Other)
  Sender: FDA-Public Use
  Company Number: US-009507513-1711USA003431

PATIENT
  Sex: Female

DRUGS (5)
  1. ZOSTAVAX [Suspect]
     Active Substance: VARICELLA-ZOSTER VIRUS STRAIN OKA/MERCK LIVE ANTIGEN
     Indication: ROUTINE HEALTH MAINTENANCE
  2. SYNTHROID [Concomitant]
     Active Substance: LEVOTHYROXINE SODIUM
     Indication: HYPOTHYROIDISM
     Dosage: 0.75 MILLIGRAM
     Dates: start: 1996
  3. ZOSTAVAX [Suspect]
     Active Substance: VARICELLA-ZOSTER VIRUS STRAIN OKA/MERCK LIVE ANTIGEN
     Indication: PROPHYLAXIS
     Route: 058
     Dates: start: 20070306
  4. STERILE DILUENT (WATER) [Suspect]
     Active Substance: WATER
     Indication: ROUTINE HEALTH MAINTENANCE
  5. STERILE DILUENT (WATER) [Suspect]
     Active Substance: WATER
     Indication: PROPHYLAXIS
     Dosage: UNK
     Route: 058
     Dates: start: 20070306

REACTIONS (5)
  - Seizure [Unknown]
  - Immune system disorder [Not Recovered/Not Resolved]
  - Herpes zoster [Not Recovered/Not Resolved]
  - Vaccination failure [Not Recovered/Not Resolved]
  - Dyspnoea [Recovered/Resolved]

NARRATIVE: CASE EVENT DATE: 20110628
